FAERS Safety Report 19129172 (Version 1)
Quarter: 2021Q2

REPORT INFORMATION
  Report Type: Spontaneous
  Country: US (occurrence: US)
  Receive Date: 20210413
  Receipt Date: 20210413
  Transmission Date: 20210717
  Serious: Yes (Hospitalization)
  Sender: FDA-Public Use
  Company Number: US-SA-2021SA115037

PATIENT
  Age: 54 Year
  Sex: Male
  Weight: 98 kg

DRUGS (13)
  1. MOZOBIL [Suspect]
     Active Substance: PLERIXAFOR
     Route: 065
  2. SODIUM BICARBONATE. [Concomitant]
     Active Substance: SODIUM BICARBONATE
  3. CHOLECALCIFEROL [Concomitant]
     Active Substance: CHOLECALCIFEROL
     Route: 048
  4. RECON [Concomitant]
     Dosage: RECON SOLN EVERY 30 DAYS
  5. NIFEDIPINE. [Concomitant]
     Active Substance: NIFEDIPINE
  6. GLIMEPIRIDE. [Concomitant]
     Active Substance: GLIMEPIRIDE
  7. ASPIRIN [ACETYLSALICYLIC ACID] [Concomitant]
     Active Substance: ASPIRIN
  8. MYCOPHENOLATE [Concomitant]
     Active Substance: MYCOPHENOLIC ACID
  9. VALACYCLOVIR HCL [Concomitant]
     Active Substance: VALACYCLOVIR HYDROCHLORIDE
     Dosage: EVERY 48 HOURS
  10. CLONIDINE. [Concomitant]
     Active Substance: CLONIDINE
  11. TAMSULOSIN [Concomitant]
     Active Substance: TAMSULOSIN
  12. BELATACEPT [Concomitant]
     Active Substance: BELATACEPT
  13. DOCUSATE SODIUM. [Concomitant]
     Active Substance: DOCUSATE SODIUM

REACTIONS (6)
  - Erythema [Unknown]
  - Infection [Unknown]
  - Peripheral swelling [Unknown]
  - Condition aggravated [Unknown]
  - Pain in extremity [Unknown]
  - Skin ulcer [Unknown]

NARRATIVE: CASE EVENT DATE: 20210401
